FAERS Safety Report 14784864 (Version 1)
Quarter: 2018Q2

REPORT INFORMATION
  Report Type: Spontaneous
  Country: IN (occurrence: IN)
  Receive Date: 20180420
  Receipt Date: 20180420
  Transmission Date: 20180711
  Serious: Yes (Other)
  Sender: FDA-Public Use
  Company Number: IN-SA-2018SA105423

PATIENT
  Age: 56 Year
  Sex: Male

DRUGS (9)
  1. VECURONIUM [Concomitant]
     Active Substance: VECURONIUM BROMIDE
     Route: 042
  2. OXALIPLATIN. [Suspect]
     Active Substance: OXALIPLATIN
     Indication: COLON CANCER
     Dosage: AEROSOLISED
     Route: 065
  3. NORMAL SALINE [Concomitant]
     Active Substance: SODIUM CHLORIDE
     Dosage: CISPLATIN 7.5 MG/M2 BSA IN A 150 ML NACL 0.9%, FORM SOLUTION
     Route: 065
  4. CISPLATIN. [Suspect]
     Active Substance: CISPLATIN
     Indication: COLON CANCER
     Dosage: AEROSOLISED
     Route: 065
  5. FENTANYL. [Concomitant]
     Active Substance: FENTANYL
     Indication: GENERAL ANAESTHESIA
     Route: 042
  6. PROPOFOL. [Concomitant]
     Active Substance: PROPOFOL
     Indication: GENERAL ANAESTHESIA
     Route: 042
  7. NORMAL SALINE [Concomitant]
     Active Substance: SODIUM CHLORIDE
     Dosage: CANCERS DOXORUBICIN 1.5 MG/M2 BODY SURFACE AREA (BSA) IN A 50 ML NACL 0.9% SOLUTION, FORM SOLUTION
     Route: 065
  8. DOXORUBICIN [Suspect]
     Active Substance: DOXORUBICIN
     Indication: METASTASES TO PERITONEUM
     Dosage: AEROSOLISED
     Route: 065
  9. SEVOFLURANE. [Concomitant]
     Active Substance: SEVOFLURANE
     Indication: MAINTENANCE OF ANAESTHESIA

REACTIONS (1)
  - Chemical peritonitis [Recovered/Resolved]
